FAERS Safety Report 18200058 (Version 2)
Quarter: 2020Q3

REPORT INFORMATION
  Report Type: Spontaneous
  Country: US (occurrence: US)
  Receive Date: 20200827
  Receipt Date: 20200925
  Transmission Date: 20201103
  Serious: No
  Sender: FDA-Public Use
  Company Number: US-AMGEN-USASP2020136103

PATIENT
  Age: 78 Year
  Sex: Female

DRUGS (1)
  1. PROLIA [Suspect]
     Active Substance: DENOSUMAB
     Indication: OSTEOPOROSIS POSTMENOPAUSAL
     Dosage: 60 MILLIGRAM, QMO
     Route: 065
     Dates: start: 201801

REACTIONS (3)
  - Pruritus [Not Recovered/Not Resolved]
  - Erythema [Recovered/Resolved]
  - Rash [Unknown]

NARRATIVE: CASE EVENT DATE: 202006
